FAERS Safety Report 12660015 (Version 1)
Quarter: 2016Q3

REPORT INFORMATION
  Report Type: Spontaneous
  Country: EE (occurrence: EE)
  Receive Date: 20160817
  Receipt Date: 20160817
  Transmission Date: 20161109
  Serious: Yes (Hospitalization)
  Sender: FDA-Public Use
  Company Number: EE-PFIZER INC-2016386572

PATIENT
  Age: 64 Year
  Sex: Male
  Weight: 110 kg

DRUGS (4)
  1. TREXAN [Suspect]
     Active Substance: METHOTREXATE SODIUM
     Indication: ANKYLOSING SPONDYLITIS
     Dosage: 7.5 MG, WEEKLY
     Route: 048
     Dates: end: 20160702
  2. HUMIRA [Suspect]
     Active Substance: ADALIMUMAB
     Indication: ANKYLOSING SPONDYLITIS
     Dosage: 40 MG, CYCLIC, EVERY OTHER WEEK AS A SINGLE DOSE
     Route: 058
     Dates: start: 20111201
  3. PREDNISOLON-RICHTER /00016201/ [Suspect]
     Active Substance: PREDNISOLONE
     Indication: ANKYLOSING SPONDYLITIS
     Dosage: 5 MG, DAILY
     Route: 048
  4. PANTOPRAZOLE [Concomitant]
     Active Substance: PANTOPRAZOLE SODIUM
     Indication: GASTRITIS
     Dosage: 20 MG, 1X/DAY
     Route: 048

REACTIONS (1)
  - Cholecystitis acute [Recovering/Resolving]

NARRATIVE: CASE EVENT DATE: 20160702
